FAERS Safety Report 17114996 (Version 1)
Quarter: 2019Q4

REPORT INFORMATION
  Report Type: Spontaneous
  Country: US (occurrence: US)
  Receive Date: 20191205
  Receipt Date: 20191205
  Transmission Date: 20200122
  Serious: No
  Sender: FDA-Public Use
  Company Number: US-GW PHARMA-201910USGW3873

PATIENT

DRUGS (3)
  1. EPIDIOLEX [Suspect]
     Active Substance: CANNABIDIOL
     Dosage: 300 MILLIGRAM, BID
     Route: 048
  2. EPIDIOLEX [Suspect]
     Active Substance: CANNABIDIOL
     Indication: LENNOX-GASTAUT SYNDROME
     Dosage: UNK
     Route: 048
     Dates: start: 201812
  3. EPIDIOLEX [Suspect]
     Active Substance: CANNABIDIOL
     Dosage: 500 MILLIGRAM, BID
     Route: 048

REACTIONS (1)
  - Seizure [Recovered/Resolved]
